FAERS Safety Report 10078663 (Version 2)
Quarter: 2014Q2

REPORT INFORMATION
  Report Type: Report from Study
  Country: US (occurrence: US)
  Receive Date: 20140415
  Receipt Date: 20140415
  Transmission Date: 20141212
  Serious: Yes (Hospitalization)
  Sender: FDA-Public Use
  Company Number: US-SANOFI-AVENTIS-2013SA074162

PATIENT
  Age: 65 Year
  Sex: Male
  Weight: 81.64 kg

DRUGS (20)
  1. CABAZITAXEL [Suspect]
     Indication: PROSTATE CANCER
     Route: 042
     Dates: start: 20130514, end: 20130514
  2. CABAZITAXEL [Suspect]
     Indication: PROSTATE CANCER
     Route: 042
     Dates: start: 20130604, end: 20130604
  3. CABAZITAXEL [Suspect]
     Indication: PROSTATE CANCER
     Route: 042
     Dates: start: 20130618
  4. ANTINEOPLASTIC AGENTS [Suspect]
     Indication: PROSTATE CANCER
     Route: 065
     Dates: start: 20130506
  5. ANTINEOPLASTIC AGENTS [Suspect]
     Indication: PROSTATE CANCER
     Route: 065
     Dates: start: 20130604, end: 20130604
  6. ANTINEOPLASTIC AGENTS [Suspect]
     Indication: PROSTATE CANCER
     Route: 065
     Dates: start: 20130618
  7. CALCIUM [Concomitant]
     Route: 065
  8. BUPROPION [Concomitant]
     Route: 048
  9. BUPROPION [Concomitant]
     Route: 048
  10. NEURONTIN [Concomitant]
     Route: 048
  11. MEGESTROL [Concomitant]
     Route: 048
  12. PRILOSEC [Concomitant]
     Route: 048
  13. PREDNISONE [Concomitant]
     Route: 048
  14. ZOFRAN [Concomitant]
     Route: 048
     Dates: start: 20130610
  15. OMEPRAZOLE [Concomitant]
  16. GABAPENTIN [Concomitant]
  17. MEGACE [Concomitant]
  18. VITAMIN B12 [Concomitant]
  19. CYANOCOBALAMIN [Concomitant]
  20. IBUPROFEN [Concomitant]

REACTIONS (5)
  - Gastroenteritis viral [Recovered/Resolved]
  - Ataxia [Recovered/Resolved]
  - Pneumonia [Recovered/Resolved]
  - Supraventricular tachycardia [Recovered/Resolved]
  - Mental status changes [Recovered/Resolved]
